FAERS Safety Report 7003691-4 (Version None)
Quarter: 2010Q3

REPORT INFORMATION
  Report Type: 
  Country: None (occurrence: None)
  Receive Date: 20100920
  Receipt Date: 20091130
  Transmission Date: 20110219
  Serious: Yes (Other)
  Sender: FDA-Public Use
  Company Number: US-WYE-H11448309

PATIENT
  Sex: Male
  Weight: 90.8 kg

DRUGS (6)
  1. PRISTIQ [Suspect]
     Indication: DEPRESSION
     Route: 048
     Dates: start: 20090925
  2. LORATADINE [Concomitant]
  3. OMEPRAZOLE [Concomitant]
     Dosage: 20 MG, FREQUENCY UNKNOWN
  4. WARFARIN SODIUM [Concomitant]
     Dosage: 4-6 MG DAILY
  5. METOPROLOL [Suspect]
     Dates: start: 20090901
  6. VERAPAMIL [Concomitant]

REACTIONS (3)
  - CONDITION AGGRAVATED [None]
  - HEART RATE INCREASED [None]
  - HYPERTENSION [None]
